FAERS Safety Report 7808171-1 (Version None)
Quarter: 2011Q4

REPORT INFORMATION
  Report Type: 
  Country: None (occurrence: None)
  Receive Date: 20111011
  Receipt Date: 20110930
  Transmission Date: 20120403
  Serious: Yes (Hospitalization)
  Sender: FDA-Public Use
  Company Number: JP-MERCK-1108USA03241

PATIENT
  Age: 73 Year
  Sex: Female

DRUGS (19)
  1. SINGULAIR [Suspect]
     Indication: ASTHMA
     Route: 048
     Dates: start: 20110610, end: 20110623
  2. ZYRTEC [Concomitant]
     Route: 048
     Dates: end: 20110616
  3. MUCODYNE [Concomitant]
     Route: 048
  4. ACETAMINOPHEN [Concomitant]
     Route: 048
  5. CEFTAZIDIME SODIUM [Concomitant]
     Route: 042
     Dates: start: 20110610, end: 20110620
  6. RABEPRAZOLE SODIUM [Concomitant]
     Route: 048
     Dates: end: 20110629
  7. HYDROCORTONE [Concomitant]
     Route: 042
     Dates: start: 20110610, end: 20110626
  8. SYMBICORT [Concomitant]
     Route: 065
     Dates: start: 20110610
  9. ONEALFA [Concomitant]
     Route: 048
  10. SINGULAIR [Suspect]
     Route: 048
     Dates: start: 20110727, end: 20110804
  11. RABEPRAZOLE SODIUM [Concomitant]
     Route: 048
     Dates: start: 20110805
  12. DISOPYRAMIDE PHOSPHATE [Concomitant]
     Route: 048
     Dates: end: 20110629
  13. CANDESARTAN CILEXETIL [Concomitant]
     Route: 048
     Dates: start: 20110616, end: 20110629
  14. MINOCYCLINE HCL [Concomitant]
     Route: 048
     Dates: end: 20110616
  15. GLAKAY [Concomitant]
     Route: 048
  16. THEO-DUR [Concomitant]
     Route: 048
     Dates: start: 20110610, end: 20110623
  17. ZOLPIDEM [Concomitant]
     Route: 065
  18. AMLODIPINE BESYLATE [Concomitant]
     Route: 048
     Dates: end: 20110629
  19. PREDNISOLONE [Concomitant]
     Route: 065
     Dates: start: 20110610, end: 20110627

REACTIONS (1)
  - THROMBOCYTOPENIA [None]
